FAERS Safety Report 6814581-1 (Version None)
Quarter: 2010Q3

REPORT INFORMATION
  Report Type: 
  Country: None (occurrence: None)
  Receive Date: 20100702
  Receipt Date: 20100625
  Transmission Date: 20110219
  Serious: Yes (Hospitalization)
  Sender: FDA-Public Use
  Company Number: GB-PURDUE-GBR-2010-0006735

PATIENT
  Age: 77 Year
  Sex: Female

DRUGS (7)
  1. MS CONTIN [Suspect]
     Indication: PAIN
     Dosage: 75 MG, UNK
     Route: 048
  2. DEXAMETHASONE [Suspect]
     Indication: METASTASIS
     Dosage: 12 MG, DAILY
     Route: 048
  3. DEXAMETHASONE [Suspect]
     Indication: PAIN
  4. LANSOPRAZOLE [Concomitant]
     Dosage: 30 MG, DAILY
     Route: 048
  5. METOCLOPRAMIDE [Concomitant]
     Dosage: 10 MG, TID
     Route: 048
  6. SERETIDE                           /01420901/ [Concomitant]
     Dosage: 250MCG
     Route: 055
  7. SPIRIVA [Concomitant]
     Dosage: 18 MCG, UNK
     Route: 055

REACTIONS (2)
  - HALLUCINATIONS, MIXED [None]
  - NARCOTIC INTOXICATION [None]
